FAERS Safety Report 9700130 (Version 1)
Quarter: 2013Q4

REPORT INFORMATION
  Report Type: Report from Study
  Country: US (occurrence: US)
  Receive Date: 20131121
  Receipt Date: 20131121
  Transmission Date: 20140711
  Serious: Yes (Other)
  Sender: FDA-Public Use
  Company Number: US-ROCHE-1301940

PATIENT
  Age: 9 Year
  Sex: Male
  Weight: 21.6 kg

DRUGS (5)
  1. NUTROPIN AQ [Suspect]
     Indication: BODY HEIGHT BELOW NORMAL
     Dosage: 0.8 MG 1 DAY AND 1 MG THE NEXT DAY, 30 DAYS SUPPLY, 11 REFILLS.
     Route: 058
  2. NUTROPIN AQ [Suspect]
     Route: 058
  3. RITALIN [Concomitant]
     Dosage: 1/2 TAB, 45 TABLETS.
     Route: 048
  4. OXYBUTYNIN [Concomitant]
     Dosage: 5MG/5ML, ONE SPOON 3X DAILY.
     Route: 048
  5. SEPTRA [Concomitant]
     Route: 048

REACTIONS (2)
  - Growth retardation [Unknown]
  - Insulin-like growth factor decreased [Unknown]
